FAERS Safety Report 6583421-0 (Version None)
Quarter: 2010Q1

REPORT INFORMATION
  Report Type: 
  Country: None (occurrence: None)
  Receive Date: 20100216
  Receipt Date: 20100204
  Transmission Date: 20100710
  Serious: Yes (Other)
  Sender: FDA-Public Use
  Company Number: JP-ROCHE-598013

PATIENT
  Sex: Male
  Weight: 52 kg

DRUGS (18)
  1. TOCILIZUMAB [Suspect]
     Indication: RHEUMATOID ARTHRITIS
     Route: 041
     Dates: start: 20080515, end: 20080515
  2. TOCILIZUMAB [Suspect]
     Route: 041
     Dates: start: 20080612, end: 20080612
  3. TOCILIZUMAB [Suspect]
     Route: 041
     Dates: start: 20080717, end: 20080717
  4. TOCILIZUMAB [Suspect]
     Route: 041
     Dates: start: 20080813, end: 20080813
  5. TOCILIZUMAB [Suspect]
     Route: 041
     Dates: start: 20080910, end: 20080910
  6. TOCILIZUMAB [Suspect]
     Route: 041
     Dates: start: 20081008, end: 20081008
  7. PREDNISOLONE [Concomitant]
     Dosage: FORM: ORAL FORMULATION (NOT OTHERWISE SPECIFIED).
     Route: 048
     Dates: end: 20080410
  8. PREDNISOLONE [Concomitant]
     Route: 048
     Dates: start: 20080411, end: 20080529
  9. PREDNISOLONE [Concomitant]
     Route: 048
     Dates: start: 20080530, end: 20080611
  10. PREDNISOLONE [Concomitant]
     Route: 048
     Dates: start: 20080612, end: 20080716
  11. PREDNISOLONE [Concomitant]
     Route: 048
     Dates: start: 20080717, end: 20080803
  12. PREDNISOLONE [Concomitant]
     Route: 048
     Dates: start: 20080804
  13. RINDERON [Concomitant]
     Route: 014
     Dates: start: 20080804, end: 20080804
  14. RINDERON [Concomitant]
     Route: 014
     Dates: start: 20080806, end: 20080806
  15. RINDERON [Concomitant]
     Route: 014
     Dates: start: 20080811, end: 20080811
  16. SOLETON [Concomitant]
     Route: 048
     Dates: end: 20080612
  17. ACTONEL [Concomitant]
     Route: 048
  18. RANITIDINE HYDROCHLORIDE [Concomitant]
     Dosage: FORM: ORAL FORMULATION (NOT OTHERWISE SPECIFIED).
     Route: 048
     Dates: end: 20080710

REACTIONS (2)
  - GASTROENTERITIS [None]
  - WHITE BLOOD CELL COUNT DECREASED [None]
